FAERS Safety Report 10414512 (Version 3)
Quarter: 2014Q4

REPORT INFORMATION
  Report Type: Report from Study
  Country: US (occurrence: US)
  Receive Date: 20140828
  Receipt Date: 20141119
  Transmission Date: 20150528
  Serious: Yes (Hospitalization)
  Sender: FDA-Public Use
  Company Number: US-BIOGENIDEC-2014BI086614

PATIENT
  Age: 51 Year
  Sex: Female

DRUGS (3)
  1. RITUXAN [Concomitant]
     Active Substance: RITUXIMAB
     Dates: start: 201405, end: 201408
  2. TYSABRI [Suspect]
     Active Substance: NATALIZUMAB
     Indication: MULTIPLE SCLEROSIS
     Route: 042
     Dates: start: 20141106
  3. TYSABRI [Suspect]
     Active Substance: NATALIZUMAB
     Indication: MULTIPLE SCLEROSIS
     Route: 042
     Dates: start: 20100414, end: 20140522

REACTIONS (14)
  - Platelet count decreased [Unknown]
  - Anaemia [Not Recovered/Not Resolved]
  - Loss of consciousness [Recovered/Resolved]
  - Contusion [Recovered/Resolved]
  - Hypotension [Recovered/Resolved]
  - Fatigue [Recovered/Resolved]
  - Mood swings [Recovered/Resolved]
  - Irritability [Recovered/Resolved]
  - Hypoglycaemia [Recovered/Resolved]
  - Hypoaesthesia [Not Recovered/Not Resolved]
  - Immune thrombocytopenic purpura [Recovered/Resolved]
  - Lethargy [Not Recovered/Not Resolved]
  - Insomnia [Recovered/Resolved]
  - Dehydration [Recovered/Resolved]

NARRATIVE: CASE EVENT DATE: 2014
